FAERS Safety Report 5099423-X (Version None)
Quarter: 2006Q3

REPORT INFORMATION
  Report Type: 
  Country: None (occurrence: None)
  Receive Date: 20060908
  Receipt Date: 20060904
  Transmission Date: 20061208
  Serious: Yes (Other)
  Sender: FDA-Public Use
  Company Number: PHBS2006CN13451

PATIENT
  Age: 70 Year
  Sex: Male

DRUGS (2)
  1. TPN [Concomitant]
  2. LIORESAL [Suspect]
     Indication: HICCUPS
     Dosage: 5 MG, BID
     Route: 048
     Dates: start: 20060831, end: 20060903

REACTIONS (2)
  - PO2 DECREASED [None]
  - RESPIRATORY DEPRESSION [None]
